FAERS Safety Report 7438254-X (Version None)
Quarter: 2011Q2

REPORT INFORMATION
  Report Type: 
  Country: None (occurrence: None)
  Receive Date: 20110426
  Receipt Date: 20101208
  Transmission Date: 20111010
  Serious: Yes (Hospitalization, Other)
  Sender: FDA-Public Use
  Company Number: US-BAYER-201022236NA

PATIENT
  Age: 49 Year
  Sex: Female
  Weight: 58.957 kg

DRUGS (3)
  1. ENALAPRIL MALEATE [Concomitant]
     Dosage: UNK
     Dates: end: 20071031
  2. YASMIN [Suspect]
     Indication: CONTRACEPTION
     Dates: start: 20061101, end: 20071101
  3. LISINOPRIL [Concomitant]
     Dosage: 20 MG, UNK
     Dates: start: 20071031

REACTIONS (2)
  - MYOCARDIAL INFARCTION [None]
  - CHEST PAIN [None]
